FAERS Safety Report 6683591-X (Version None)
Quarter: 2010Q2

REPORT INFORMATION
  Report Type: 
  Country: None (occurrence: None)
  Receive Date: 20100415
  Receipt Date: 20100406
  Transmission Date: 20101027
  Serious: Yes (Life-Threatening)
  Sender: FDA-Public Use
  Company Number: IT-JNJFOC-20100401622

PATIENT
  Age: 51 Year
  Sex: Female

DRUGS (3)
  1. REMICADE [Suspect]
     Indication: DRUG USE FOR UNKNOWN INDICATION
     Route: 042
  2. AZATHIOPRINE [Concomitant]
  3. MESALAZINE [Concomitant]

REACTIONS (1)
  - BREAST CANCER [None]
